FAERS Safety Report 5794836-2 (Version None)
Quarter: 2008Q2

REPORT INFORMATION
  Report Type: 
  Country: None (occurrence: None)
  Receive Date: 20080630
  Receipt Date: 20080624
  Transmission Date: 20081010
  Serious: Yes (Hospitalization)
  Sender: FDA-Public Use
  Company Number: B0526796A

PATIENT
  Age: 67 Year
  Sex: Male

DRUGS (1)
  1. RANITIDINE HCL [Suspect]
     Dosage: 150MG PER DAY
     Route: 048
     Dates: start: 20080609, end: 20080609

REACTIONS (4)
  - ANAPHYLACTIC REACTION [None]
  - DYSPNOEA [None]
  - OEDEMA MUCOSAL [None]
  - SWOLLEN TONGUE [None]
